FAERS Safety Report 12321231 (Version 2)
Quarter: 2016Q2

REPORT INFORMATION
  Report Type: Spontaneous
  Country: JP (occurrence: JP)
  Receive Date: 20160502
  Receipt Date: 20160614
  Transmission Date: 20160815
  Serious: Yes (Hospitalization)
  Sender: FDA-Public Use
  Company Number: JP-ORION CORPORATION ORION PHARMA-ENT 2016-0062

PATIENT
  Age: 65 Year
  Sex: Female

DRUGS (10)
  1. LEVODOPA-CARBIDOPA [Suspect]
     Active Substance: CARBIDOPA\LEVODOPA
     Route: 048
     Dates: start: 201311, end: 201409
  2. LEVODOPA-CARBIDOPA [Suspect]
     Active Substance: CARBIDOPA\LEVODOPA
     Route: 048
     Dates: start: 200908, end: 201311
  3. ROTIGOTINE [Concomitant]
     Active Substance: ROTIGOTINE
     Route: 065
     Dates: start: 201504
  4. ROPINIROLE. [Concomitant]
     Active Substance: ROPINIROLE
     Route: 065
  5. STALEVO [Suspect]
     Active Substance: CARBIDOPA\ENTACAPONE\LEVODOPA
     Indication: PARKINSON^S DISEASE
     Route: 048
     Dates: start: 20150303, end: 20150330
  6. LEVODOPA-CARBIDOPA [Suspect]
     Active Substance: CARBIDOPA\LEVODOPA
     Route: 048
     Dates: start: 201409, end: 201501
  7. SELEGILINE [Concomitant]
     Active Substance: SELEGILINE
     Route: 065
     Dates: start: 201207, end: 201410
  8. COMTAN [Suspect]
     Active Substance: ENTACAPONE
     Indication: PARKINSON^S DISEASE
     Route: 048
     Dates: start: 201107, end: 201507
  9. LEVODOPA-CARBIDOPA [Suspect]
     Active Substance: CARBIDOPA\LEVODOPA
     Route: 048
     Dates: start: 201501, end: 201602
  10. CABERGOLINE. [Concomitant]
     Active Substance: CABERGOLINE
     Route: 065
     Dates: start: 201506

REACTIONS (5)
  - Nausea [Recovered/Resolved]
  - Dyskinesia [Recovered/Resolved]
  - Nocturia [Recovered/Resolved]
  - Decreased appetite [Recovered/Resolved]
  - Parkinson^s disease [Recovering/Resolving]

NARRATIVE: CASE EVENT DATE: 2013
